FAERS Safety Report 5959764-8 (Version None)
Quarter: 2008Q4

REPORT INFORMATION
  Report Type: 
  Country: None (occurrence: None)
  Receive Date: 20081119
  Receipt Date: 20081119
  Transmission Date: 20090506
  Serious: No
  Sender: FDA-Public Use
  Company Number: None

PATIENT
  Age: 82 Year
  Sex: Male
  Weight: 111 kg

DRUGS (8)
  1. OMNIPAQUE 300 [Suspect]
     Indication: COMPUTERISED TOMOGRAM
     Dosage: 100 ML X 2
     Dates: start: 20080612, end: 20080613
  2. INSULIN [Concomitant]
  3. PHENYTOIN [Concomitant]
  4. RANITIDINE [Concomitant]
  5. HEPARIN [Concomitant]
  6. VALSARTAN [Concomitant]
  7. PREDNISONE TAB [Concomitant]
  8. DIGOXIN [Concomitant]

REACTIONS (2)
  - NEPHROPATHY TOXIC [None]
  - RENAL FAILURE [None]
